FAERS Safety Report 8131629-5 (Version None)
Quarter: 2012Q1

REPORT INFORMATION
  Report Type: 
  Country: None (occurrence: None)
  Receive Date: 20120213
  Receipt Date: 20120202
  Transmission Date: 20120608
  Serious: Yes (Hospitalization)
  Sender: FDA-Public Use
  Company Number: IL-SANOFI-AVENTIS-2012SA008989

PATIENT
  Age: 87 Year
  Sex: Male

DRUGS (4)
  1. METFORMIN HCL [Concomitant]
  2. EXELON [Suspect]
     Route: 065
  3. ALFUZOSIN HCL [Suspect]
     Route: 065
  4. DONEPEZIL HCL [Suspect]
     Route: 065

REACTIONS (1)
  - CONFUSIONAL STATE [None]
